FAERS Safety Report 11979105 (Version 1)
Quarter: 2016Q1

REPORT INFORMATION
  Report Type: Report from Study
  Country: US (occurrence: US)
  Receive Date: 20160129
  Receipt Date: 20160129
  Transmission Date: 20160526
  Serious: No
  Sender: FDA-Public Use
  Company Number: US-ABBVIE-15K-163-1406802-00

PATIENT
  Age: 53 Year
  Sex: Female
  Weight: 124.85 kg

DRUGS (2)
  1. HUMIRA [Suspect]
     Active Substance: ADALIMUMAB
     Indication: FIBROMYALGIA
     Route: 058
     Dates: start: 20150501
  2. HUMIRA [Suspect]
     Active Substance: ADALIMUMAB
     Indication: RHEUMATOID ARTHRITIS
     Route: 058
     Dates: start: 201309, end: 201502

REACTIONS (3)
  - Oropharyngeal pain [Not Recovered/Not Resolved]
  - Pneumonia mycoplasmal [Recovering/Resolving]
  - Pharyngeal oedema [Not Recovered/Not Resolved]

NARRATIVE: CASE EVENT DATE: 201409
